FAERS Safety Report 21965481 (Version 10)
Quarter: 2024Q3

REPORT INFORMATION
  Report Type: Report from Study
  Country: CA (occurrence: CA)
  Receive Date: 20230208
  Receipt Date: 20240820
  Transmission Date: 20241017
  Serious: Yes (Hospitalization, Other)
  Sender: JOHNSON AND JOHNSON
  Company Number: CA-JNJFOC-20221203410

PATIENT
  Age: 55 Year
  Sex: Female
  Weight: 96 kg

DRUGS (3)
  1. REMICADE [Suspect]
     Active Substance: INFLIXIMAB
     Indication: Crohn^s disease
     Route: 041
     Dates: start: 20161101
  2. REMICADE [Suspect]
     Active Substance: INFLIXIMAB
     Route: 041
     Dates: start: 20161102
  3. REMICADE [Suspect]
     Active Substance: INFLIXIMAB
     Route: 041

REACTIONS (19)
  - Herpes zoster [Recovered/Resolved]
  - Humerus fracture [Recovering/Resolving]
  - Lower limb fracture [Unknown]
  - Shoulder fracture [Unknown]
  - Fall [Unknown]
  - Malaise [Recovering/Resolving]
  - Peripheral swelling [Unknown]
  - Muscular weakness [Unknown]
  - Nerve injury [Recovering/Resolving]
  - Swelling [Unknown]
  - Inappropriate schedule of product administration [Unknown]
  - Insomnia [Recovering/Resolving]
  - Off label use [Unknown]
  - Heat stroke [Recovered/Resolved]
  - Heat exhaustion [Recovered/Resolved]
  - Food poisoning [Recovered/Resolved]
  - Pain in extremity [Recovering/Resolving]
  - Abdominal pain [Recovered/Resolved]
  - Diarrhoea [Recovered/Resolved]

NARRATIVE: CASE EVENT DATE: 20161101
